FAERS Safety Report 15211158 (Version 3)
Quarter: 2018Q3

REPORT INFORMATION
  Report Type: Report from Study
  Country: US (occurrence: US)
  Receive Date: 20180729
  Receipt Date: 20180817
  Transmission Date: 20181010
  Serious: No
  Sender: FDA-Public Use
  Company Number: PHEH2018US030578

PATIENT
  Sex: Female

DRUGS (1)
  1. ENTRESTO [Suspect]
     Active Substance: SACUBITRIL\VALSARTAN
     Indication: CARDIAC FAILURE CONGESTIVE
     Dosage: 2 DF, QD
     Route: 048

REACTIONS (4)
  - Blood pressure fluctuation [Unknown]
  - Wrong technique in product usage process [Unknown]
  - Fatigue [Unknown]
  - Underdose [Unknown]
